FAERS Safety Report 10228494 (Version 2)
Quarter: 2014Q2

REPORT INFORMATION
  Report Type: Spontaneous
  Country: DE (occurrence: DE)
  Receive Date: 20140610
  Receipt Date: 20140610
  Transmission Date: 20141212
  Serious: Yes (Other)
  Sender: FDA-Public Use
  Company Number: PHHY2014DE053312

PATIENT
  Sex: Female

DRUGS (4)
  1. GILENYA [Suspect]
     Indication: MULTIPLE SCLEROSIS
     Dosage: 0.5 MG, DAILY
     Route: 048
     Dates: start: 20120911
  2. BACLOFEN [Suspect]
     Indication: MULTIPLE SCLEROSIS
     Dosage: 20 MG, QD
     Route: 048
     Dates: start: 20130415
  3. SIRDALUD [Suspect]
     Indication: MULTIPLE SCLEROSIS
     Dosage: 2 MG, QD
     Route: 048
     Dates: start: 20090505
  4. OPTIDORM [Suspect]
     Indication: MULTIPLE SCLEROSIS
     Dosage: 7.5 MG, QD
     Route: 048
     Dates: start: 20070717

REACTIONS (3)
  - Cough [Recovered/Resolved]
  - Chest pain [Not Recovered/Not Resolved]
  - Inflammatory marker increased [Unknown]
